FAERS Safety Report 10025943 (Version 1)
Quarter: 2014Q1

REPORT INFORMATION
  Report Type: Spontaneous
  Country: TW (occurrence: None)
  Receive Date: 20140314
  Receipt Date: 20140314
  Transmission Date: 20141002
  Serious: Yes (Other)
  Sender: FDA-Public Use
  Company Number: TW-20140001

PATIENT
  Age: 66 Year
  Sex: Female

DRUGS (3)
  1. LIPIODOL (ETHIODIZED OIL), UNKNOWN [Suspect]
     Indication: THERAPEUTIC EMBOLISATION
     Route: 013
  2. DOXORUBICIN [Concomitant]
  3. GELATIN [Concomitant]

REACTIONS (1)
  - Cerebral artery embolism [None]
